FAERS Safety Report 9456831 (Version 1)
Quarter: 2013Q3

REPORT INFORMATION
  Report Type: Spontaneous
  Country: PR (occurrence: None)
  Receive Date: 20130809
  Receipt Date: 20130809
  Transmission Date: 20140515
  Serious: Yes (Death)
  Sender: FDA-Public Use
  Company Number: 1825848

PATIENT
  Sex: 0

DRUGS (1)
  1. LIDOCAINE HYDROCHLORIDE [Suspect]
     Indication: ABORTION INDUCED

REACTIONS (3)
  - Cardiac arrest [None]
  - Foetal death [None]
  - Off label use [None]
